FAERS Safety Report 9736084 (Version 2)
Quarter: 2014Q1

REPORT INFORMATION
  Report Type: Report from Study
  Country: ES (occurrence: ES)
  Receive Date: 20131206
  Receipt Date: 20140219
  Transmission Date: 20141002
  Serious: Yes (Hospitalization)
  Sender: FDA-Public Use
  Company Number: ES-GLAXOSMITHKLINE-B0907259A

PATIENT
  Age: 51 Year
  Sex: Female

DRUGS (2)
  1. VOTRIENT [Suspect]
     Indication: PRODUCT USED FOR UNKNOWN INDICATION
     Dosage: 800MG PER DAY
     Route: 065
  2. GEMCITABINE [Concomitant]

REACTIONS (7)
  - Hypertension [Recovered/Resolved]
  - Asthenia [Recovered/Resolved]
  - Stress fracture [Unknown]
  - Haematoma [Unknown]
  - Anaemia [Unknown]
  - Bone neoplasm [Unknown]
  - Neoplasm progression [Unknown]
